FAERS Safety Report 6555946-5 (Version None)
Quarter: 2010Q1

REPORT INFORMATION
  Report Type: 
  Country: None (occurrence: None)
  Receive Date: 20100125
  Receipt Date: 20100112
  Transmission Date: 20100710
  Serious: Yes (Hospitalization)
  Sender: FDA-Public Use
  Company Number: 2010SP002683

PATIENT
  Age: 61 Year
  Sex: Male

DRUGS (8)
  1. REMERON [Suspect]
     Indication: MAJOR DEPRESSION
     Dosage: 30 MG;QD
  2. ZYPREXA [Suspect]
     Indication: MAJOR DEPRESSION
     Dosage: 5 MG;QD
  3. EFFEXOR [Suspect]
     Indication: MAJOR DEPRESSION
     Dosage: 75 MG;QD
  4. CIPROXIN (CIPROFLOXACIN) [Suspect]
     Indication: BALANITIS
     Dosage: 500 MG;BID
     Dates: start: 20090219, end: 20090304
  5. SELEXID (PIVMECILLINAM) [Concomitant]
  6. DUPHALAC [Concomitant]
  7. VIVAL [Concomitant]
  8. IMOVANE [Concomitant]

REACTIONS (2)
  - DRUG INTERACTION [None]
  - SEROTONIN SYNDROME [None]
